FAERS Safety Report 13235872 (Version 3)
Quarter: 2017Q1

REPORT INFORMATION
  Report Type: Report from Study
  Country: DE (occurrence: JP)
  Receive Date: 20170215
  Receipt Date: 20170302
  Transmission Date: 20170428
  Serious: Yes (Other)
  Sender: FDA-Public Use
  Company Number: JP-BRACCO-010949

PATIENT

DRUGS (3)
  1. OLDAMIN [Suspect]
     Active Substance: ETHANOLAMINE OLEATE
     Indication: SCLEROTHERAPY
     Dosage: DIRECT INJECTION INTO ESOPHAGEAL VARICES
     Route: 050
  2. BUSCOPAN [Concomitant]
     Active Substance: BUTYLSCOPOLAMINE BROMIDE
  3. IOPAMIRON [Suspect]
     Active Substance: IOPAMIDOL
     Indication: X-RAY
     Dosage: DIRECT INJECTION INTO ESOPHAGEAL VARICES
     Route: 050

REACTIONS (3)
  - Product preparation error [Unknown]
  - Portal vein thrombosis [Unknown]
  - Incorrect route of drug administration [Unknown]
